FAERS Safety Report 8020272-4 (Version None)
Quarter: 2012Q1

REPORT INFORMATION
  Report Type: 
  Country: None (occurrence: None)
  Receive Date: 20120103
  Receipt Date: 20111219
  Transmission Date: 20120608
  Serious: Yes (Death)
  Sender: FDA-Public Use
  Company Number: US-UCBSA-048367

PATIENT
  Age: 31 Year
  Sex: Male

DRUGS (4)
  1. ALPRAZOLAM [Suspect]
     Route: 048
  2. HYDROXYZINE [Suspect]
     Route: 048
  3. METHADONE HCL [Suspect]
     Route: 048
  4. TRAZODONE HCL [Suspect]
     Route: 048

REACTIONS (5)
  - COMPLETED SUICIDE [None]
  - INTENTIONAL DRUG MISUSE [None]
  - CARDIAC ARREST [None]
  - RESPIRATORY ARREST [None]
  - TOXICITY TO VARIOUS AGENTS [None]
